FAERS Safety Report 5357422-4 (Version None)
Quarter: 2007Q2

REPORT INFORMATION
  Report Type: 
  Country: None (occurrence: None)
  Receive Date: 20070530
  Receipt Date: 20061023
  Transmission Date: 20071010
  Serious: Yes (Hospitalization)
  Sender: FDA-Public Use
  Company Number: US_0509121885

PATIENT
  Age: 48 Year
  Sex: Female
  Weight: 90.2 kg

DRUGS (3)
  1. ZYPREXA [Suspect]
     Dates: start: 20000601
  2. SEROQUEL [Concomitant]
  3. GEODON [Concomitant]

REACTIONS (2)
  - CEREBROVASCULAR ACCIDENT [None]
  - DIABETES MELLITUS [None]
